FAERS Safety Report 18087409 (Version 4)
Quarter: 2022Q3

REPORT INFORMATION
  Report Type: Report from Study
  Country: JP (occurrence: JP)
  Receive Date: 20200729
  Receipt Date: 20220715
  Transmission Date: 20221027
  Serious: Yes (Hospitalization, Disabling, Other)
  Sender: FDA-Public Use
  Company Number: JP-PFIZER INC-2020286557

PATIENT
  Age: 80 Year
  Sex: Male
  Weight: 59.8 kg

DRUGS (21)
  1. VYNDAQEL [Suspect]
     Active Substance: TAFAMIDIS MEGLUMINE
     Indication: Cardiac amyloidosis
     Dosage: 80 MG, 1X/DAY
     Route: 048
     Dates: start: 20200518, end: 20200727
  2. VYNDAQEL [Suspect]
     Active Substance: TAFAMIDIS MEGLUMINE
     Indication: Amyloidosis senile
     Dosage: 80 MG, 1X/DAY
     Dates: start: 20200827, end: 20211207
  3. WARFARIN POTASSIUM [Suspect]
     Active Substance: WARFARIN POTASSIUM
     Indication: Thrombosis prophylaxis
     Dosage: 1.5 MG, 1X/DAY
     Route: 048
     Dates: start: 20191023, end: 20200727
  4. WARFARIN POTASSIUM [Suspect]
     Active Substance: WARFARIN POTASSIUM
     Dosage: UNK
  5. ETIZOLAM [Suspect]
     Active Substance: ETIZOLAM
     Indication: Insomnia
     Dosage: 1 MG, 1X/DAY
     Route: 048
     Dates: start: 20191023, end: 20200727
  6. ETIZOLAM [Suspect]
     Active Substance: ETIZOLAM
     Dosage: UNK
  7. CALCIUM POLYSTYRENE SULFONATE [Concomitant]
     Active Substance: CALCIUM POLYSTYRENE SULFONATE
     Indication: Hyperkalaemia
     Dosage: 25 G, 3X/DAY
     Route: 048
     Dates: start: 20200330
  8. TENELIGLIPTIN [Concomitant]
     Active Substance: TENELIGLIPTIN
     Indication: Diabetes mellitus
     Dosage: 20 MG, 1X/DAY
     Route: 048
     Dates: start: 20191023, end: 20200727
  9. CANAGLIFLOZIN [Concomitant]
     Active Substance: CANAGLIFLOZIN
     Indication: Diabetes mellitus
     Dosage: 100 MG, 1X/DAY
     Route: 048
     Dates: start: 20191023, end: 20200727
  10. CANAGLIFLOZIN [Concomitant]
     Active Substance: CANAGLIFLOZIN
     Dosage: UNK
  11. NEXIUM [Concomitant]
     Active Substance: ESOMEPRAZOLE MAGNESIUM
     Indication: Chronic gastritis
     Dosage: 20 MG, 1X/DAY
     Route: 048
     Dates: start: 20191023, end: 20200928
  12. AMIODARONE [Concomitant]
     Active Substance: AMIODARONE
     Indication: Atrial fibrillation
     Dosage: 100 MG, 1X/DAY
     Route: 048
     Dates: start: 20191023
  13. FUROSEMIDE [Concomitant]
     Active Substance: FUROSEMIDE
     Indication: Cardiac failure chronic
     Dosage: 10 MG, 1X/DAY
     Route: 048
     Dates: start: 20191023
  14. PIMOBENDAN [Concomitant]
     Active Substance: PIMOBENDAN
     Indication: Cardiac failure chronic
     Dosage: UNK
     Route: 048
     Dates: start: 20210712
  15. VONOPRAZAN FUMARATE [Concomitant]
     Active Substance: VONOPRAZAN FUMARATE
     Indication: Chronic gastritis
     Dosage: UNK
     Route: 048
     Dates: start: 20211026
  16. FEBUXOSTAT [Concomitant]
     Active Substance: FEBUXOSTAT
     Indication: Hyperuricaemia
     Dosage: UNK
     Dates: start: 20211026
  17. SENNOSIDES A AND B [Concomitant]
     Active Substance: SENNOSIDES A AND B
     Indication: Constipation
     Dosage: UNK
     Route: 048
     Dates: start: 20211026
  18. APRINDINE [APRINDINE HYDROCHLORIDE] [Concomitant]
     Indication: Atrial fibrillation
     Dosage: UNK
     Route: 048
     Dates: start: 20211028
  19. ETIZOLAM [Concomitant]
     Active Substance: ETIZOLAM
     Indication: Insomnia
     Dosage: UNK
     Route: 048
     Dates: start: 20191023
  20. MEXILETINE [Concomitant]
     Active Substance: MEXILETINE
     Dosage: UNK
     Route: 048
     Dates: start: 20211113
  21. HERBALS [Suspect]
     Active Substance: HERBALS
     Indication: Cardiac failure chronic
     Dosage: UNK
     Route: 048
     Dates: start: 20210729

REACTIONS (4)
  - Cardiac failure chronic [Not Recovered/Not Resolved]
  - Ventricular tachycardia [Recovering/Resolving]
  - Subdural haematoma [Recovered/Resolved]
  - Fall [Unknown]

NARRATIVE: CASE EVENT DATE: 20200727
